FAERS Safety Report 14568234 (Version 2)
Quarter: 2018Q3

REPORT INFORMATION
  Report Type: Spontaneous
  Country: ES (occurrence: ES)
  Receive Date: 20180223
  Receipt Date: 20180727
  Transmission Date: 20181010
  Serious: Yes (Other)
  Sender: FDA-Public Use
  Company Number: ES-TEVA-2018-ES-859769

PATIENT
  Age: 62 Year
  Sex: Male

DRUGS (3)
  1. LEFLUNOMIDA (7414A) [Suspect]
     Active Substance: LEFLUNOMIDE
     Indication: RHEUMATOID ARTHRITIS
     Dosage: 20 MILLIGRAM DAILY; 20 MG EVERY 24 HOURS (IN FOOD)
     Route: 048
     Dates: end: 2011
  2. DEXKETOPROFENO  TROMETAMOL (7312TJ) [Concomitant]
     Active Substance: DEXKETOPROFEN TROMETAMOL
     Indication: RHEUMATOID ARTHRITIS
     Dosage: 25 MG ON DEMAND
     Route: 048
  3. ENBREL [Suspect]
     Active Substance: ETANERCEPT
     Indication: RHEUMATOID ARTHRITIS
     Dosage: 50 MG EVERY 15 DAYS
     Route: 059
     Dates: start: 20110223, end: 20170630

REACTIONS (2)
  - Emphysema [Not Recovered/Not Resolved]
  - Interstitial lung disease [Not Recovered/Not Resolved]

NARRATIVE: CASE EVENT DATE: 20171101
